FAERS Safety Report 6435166-5 (Version None)
Quarter: 2009Q4

REPORT INFORMATION
  Report Type: 
  Country: None (occurrence: None)
  Receive Date: 20091110
  Receipt Date: 20090924
  Transmission Date: 20100525
  Serious: No
  Sender: FDA-Public Use
  Company Number: US-BRISTOL-MYERS SQUIBB COMPANY-14792188

PATIENT
  Age: 67 Year
  Sex: Female
  Weight: 89 kg

DRUGS (8)
  1. IXEMPRA KIT [Suspect]
     Route: 042
     Dates: start: 20090914
  2. LOPRESSOR [Concomitant]
  3. WARFARIN SODIUM [Concomitant]
     Dosage: 2 TABLETS MONDAYS AND FRIDAYS,3 TABLETS THE REMAINING DAYS
  4. MULTI-VITAMIN [Concomitant]
  5. FLAXSEED OIL [Concomitant]
  6. VITAMIN D [Concomitant]
  7. AMBROTOSE [Concomitant]
  8. TURMERIC [Concomitant]

REACTIONS (4)
  - DYSGEUSIA [None]
  - NAUSEA [None]
  - NEURALGIA [None]
  - SKIN ODOUR ABNORMAL [None]
